FAERS Safety Report 21455456 (Version 1)
Quarter: 2022Q4

REPORT INFORMATION
  Report Type: Spontaneous
  Country: GB (occurrence: GB)
  Receive Date: 20221014
  Receipt Date: 20221014
  Transmission Date: 20230113
  Serious: Yes (Other)
  Sender: FDA-Public Use
  Company Number: GB-SUN PHARMACEUTICAL INDUSTRIES LTD-2022RR-358535

PATIENT
  Age: 27 Year
  Sex: Male

DRUGS (1)
  1. CITALOPRAM [Suspect]
     Active Substance: CITALOPRAM HYDROBROMIDE
     Indication: Depression
     Dosage: 10 MILLIGRAM, UNK
     Route: 065
     Dates: start: 20220826, end: 20220905

REACTIONS (2)
  - Suicidal ideation [Not Recovered/Not Resolved]
  - Intentional self-injury [Unknown]

NARRATIVE: CASE EVENT DATE: 20220826
